FAERS Safety Report 4265916-8 (Version None)
Quarter: 2004Q1

REPORT INFORMATION
  Report Type: 
  Country: None (occurrence: None)
  Receive Date: 20040106
  Receipt Date: 20031226
  Transmission Date: 20041129
  Serious: Yes (Hospitalization)
  Sender: FDA-Public Use
  Company Number: FR-JNJFOC-20031204970

PATIENT
  Age: 9 Year
  Sex: Male

DRUGS (1)
  1. REMICADE [Suspect]
     Indication: JUVENILE ARTHRITIS
     Dosage: 100 MG INTRAVENOUS
     Route: 042
     Dates: start: 20020108, end: 20031106

REACTIONS (3)
  - CHEST DISCOMFORT [None]
  - INFUSION RELATED REACTION [None]
  - TACHYCARDIA [None]
